FAERS Safety Report 6686530-0 (Version None)
Quarter: 2010Q2

REPORT INFORMATION
  Report Type: 
  Country: None (occurrence: None)
  Receive Date: 20100419
  Receipt Date: 20100405
  Transmission Date: 20101027
  Serious: Yes (Hospitalization)
  Sender: FDA-Public Use
  Company Number: ES-ELI_LILLY_AND_COMPANY-ES201004001043

PATIENT
  Sex: Female
  Weight: 48 kg

DRUGS (8)
  1. FORTEO [Suspect]
     Indication: OSTEOPOROSIS
     Dosage: 20 UG, DAILY (1/D)
     Route: 058
     Dates: start: 20100301, end: 20100326
  2. SINTROM [Concomitant]
     Indication: ARRHYTHMIA
     Dosage: 4 MG, AS NEEDED
     Route: 048
  3. AMIODARONE HCL [Concomitant]
     Indication: ARRHYTHMIA
     Dosage: 200MG, 1CP/48H
     Route: 048
  4. SEGURIL [Concomitant]
     Indication: HYPERTENSION
     Dosage: 40 MG, DAILY (1/D)
     Route: 048
  5. ALDACTONE [Concomitant]
     Indication: HYPERTENSION
     Dosage: 25 MG, DAILY (1/D)
  6. COZAAR [Concomitant]
     Indication: HYPERTENSION
     Dosage: UNK, DAILY (1/D)
     Route: 048
  7. FAMOTIDINA [Concomitant]
     Indication: GASTRIC DISORDER
     Dosage: 40 MG, DAILY (1/D)
     Route: 048
  8. DEPRAX [Concomitant]
     Indication: DEPRESSION
     Dosage: 100 D/F, DAILY (1/D)
     Route: 048

REACTIONS (1)
  - ARRHYTHMIA [None]
